APPROVED DRUG PRODUCT: FOLIC ACID
Active Ingredient: FOLIC ACID
Strength: 1MG
Dosage Form/Route: TABLET;ORAL
Application: A202437 | Product #001 | TE Code: AA
Applicant: CADILA PHARMACEUTICALS LTD
Approved: Jan 27, 2014 | RLD: No | RS: No | Type: RX